FAERS Safety Report 24157258 (Version 3)
Quarter: 2025Q1

REPORT INFORMATION
  Report Type: Spontaneous
  Country: US (occurrence: US)
  Receive Date: 20240731
  Receipt Date: 20250313
  Transmission Date: 20250409
  Serious: No
  Sender: SANOFI AVENTIS
  Company Number: US-SA-SAC20240726000383

PATIENT
  Age: 57 Year
  Sex: Female

DRUGS (2)
  1. DUPIXENT [Suspect]
     Active Substance: DUPILUMAB
     Indication: Nasal polyps
     Dosage: 300 MG, QOW
     Route: 058
     Dates: start: 20240604
  2. TOBRAMYCIN [Concomitant]
     Active Substance: TOBRAMYCIN
     Indication: Sinusitis

REACTIONS (10)
  - Anosmia [Unknown]
  - Chronic sinusitis [Unknown]
  - Condition aggravated [Unknown]
  - Ageusia [Unknown]
  - Incorrect dose administered [Unknown]
  - Sinus congestion [Unknown]
  - Sinonasal obstruction [Unknown]
  - Sinusitis [Unknown]
  - Migraine [Unknown]
  - Drug ineffective [Unknown]

NARRATIVE: CASE EVENT DATE: 20240101
